FAERS Safety Report 13740586 (Version 1)
Quarter: 2017Q3

REPORT INFORMATION
  Report Type: Spontaneous
  Country: US (occurrence: US)
  Receive Date: 20170711
  Receipt Date: 20170711
  Transmission Date: 20171127
  Serious: No
  Sender: FDA-Public Use
  Company Number: US-IPSEN BIOPHARMACEUTICALS, INC.-2014-4751

PATIENT
  Age: 47 Year
  Sex: Female
  Weight: 99.7 kg

DRUGS (2)
  1. DYSPORT [Suspect]
     Active Substance: ABOBOTULINUMTOXINA
     Indication: PRODUCT USED FOR UNKNOWN INDICATION
     Dosage: NOT REPORTED
     Route: 065
     Dates: start: 20140902, end: 20140902
  2. ESTROGEN-TESTOSTERONE (HORMONE REPLACEMENT THERAPY) [Concomitant]
     Indication: PRODUCT USED FOR UNKNOWN INDICATION
     Dosage: NOT REPORTED
     Route: 065

REACTIONS (3)
  - Pharyngeal hypoaesthesia [None]
  - Accidental exposure to product [Unknown]
  - Anxiety [None]

NARRATIVE: CASE EVENT DATE: 201409
